FAERS Safety Report 8442076 (Version 3)
Quarter: 2013Q2

REPORT INFORMATION
  Report Type: Spontaneous
  Country: US (occurrence: US)
  Receive Date: 20120305
  Receipt Date: 20130404
  Transmission Date: 20140414
  Serious: Yes (Other)
  Sender: FDA-Public Use
  Company Number: PHEH2012US004882

PATIENT
  Sex: Male
  Weight: 66.23 kg

DRUGS (10)
  1. TOBI [Suspect]
     Indication: CYSTIC FIBROSIS
     Dosage: 300 MG, BID
     Dates: end: 20120226
  2. TOBI [Suspect]
     Indication: PSEUDOMONAS INFECTION
  3. TOBI [Suspect]
     Indication: SPUTUM CULTURE
  4. ADVAIR [Concomitant]
     Indication: ASTHMA
     Dosage: 2 DF, BID
  5. AZITHROMYCIN [Concomitant]
     Indication: CYSTIC FIBROSIS
     Dosage: 500 MG, UNK
     Route: 048
  6. ALBUTEROL [Concomitant]
     Indication: BRONCHIAL HYPERREACTIVITY
     Dosage: 2 DF, PRN
  7. CREON [Concomitant]
     Dosage: 5 DF, UNK
     Route: 048
  8. NEXIUM 1-2-3 [Concomitant]
     Indication: CYSTIC FIBROSIS
     Dosage: 40 MG, QD
     Route: 048
  9. PULMOZYME [Concomitant]
     Indication: CYSTIC FIBROSIS
     Dosage: 2.5 MG, QD
  10. MULTIVITAMINS [Concomitant]
     Dosage: 2 DF, UNK

REACTIONS (2)
  - Oropharyngeal swelling [Recovered/Resolved]
  - Dyspnoea [Recovered/Resolved]
